FAERS Safety Report 5499268-2 (Version None)
Quarter: 2007Q4

REPORT INFORMATION
  Report Type: 
  Country: None (occurrence: None)
  Receive Date: 20071026
  Receipt Date: 20071018
  Transmission Date: 20080405
  Serious: Yes (Other)
  Sender: FDA-Public Use
  Company Number: US-JNJFOC-20071005227

PATIENT
  Sex: Female
  Weight: 78.47 kg

DRUGS (6)
  1. EXTRA STRENGTH TYLENOL [Suspect]
     Indication: INSOMNIA
  2. AMBIEN [Concomitant]
     Indication: INSOMNIA
     Dosage: NIGHTLY
  3. SEROQUEL [Concomitant]
     Indication: PSYCHOTIC DISORDER
  4. ABILIFY [Concomitant]
     Indication: PSYCHOTIC DISORDER
  5. UNSPECIFIED STOOL SOFTENER [Concomitant]
     Indication: CONSTIPATION
     Dosage: AS NEEDED
  6. VITAMINS [Concomitant]
     Indication: GENERAL PHYSICAL CONDITION
     Dosage: 2-3 DAILY

REACTIONS (2)
  - BLOOD GLUCOSE INCREASED [None]
  - INCORRECT DOSE ADMINISTERED [None]
